FAERS Safety Report 14247125 (Version 2)
Quarter: 2018Q1

REPORT INFORMATION
  Report Type: Spontaneous
  Country: US (occurrence: US)
  Receive Date: 20171204
  Receipt Date: 20180122
  Transmission Date: 20180508
  Serious: No
  Sender: FDA-Public Use
  Company Number: US-LEO PHARMA-305860

PATIENT
  Age: 68 Year
  Sex: Female

DRUGS (5)
  1. VITAMIN D3- SUPPLEMENT 2000 [Concomitant]
     Indication: VITAMIN SUPPLEMENTATION
     Dosage: 2000
     Route: 048
  2. PICATO [Suspect]
     Active Substance: INGENOL MEBUTATE
     Indication: PRECANCEROUS SKIN LESION
     Dosage: PATIENT HAS USED ONE DOSE AT 10:15AM ON 22-NOV-2017, AND A SECOND DOSE AT 9PM ON 22-NOV-2017.
     Route: 061
     Dates: start: 20171122, end: 20171122
  3. ATORVASTATIN [Concomitant]
     Active Substance: ATORVASTATIN
     Indication: BLOOD CHOLESTEROL INCREASED
     Route: 048
  4. VALSARTAN HCT [Concomitant]
     Active Substance: HYDROCHLOROTHIAZIDE\VALSARTAN
     Indication: HYPERTENSION
     Dosage: 320/12.5MG
     Route: 048
  5. LORATADINE. [Concomitant]
     Active Substance: LORATADINE
     Indication: SEASONAL ALLERGY
     Route: 048

REACTIONS (7)
  - Incorrect drug administration duration [Unknown]
  - Application site erythema [Recovered/Resolved]
  - Application site swelling [Recovered/Resolved]
  - Application site vesicles [Recovered/Resolved]
  - Application site discomfort [Recovered/Resolved]
  - Inappropriate schedule of drug administration [Unknown]
  - Incorrect dose administered [Unknown]

NARRATIVE: CASE EVENT DATE: 20171122
